FAERS Safety Report 23684779 (Version 1)
Quarter: 2024Q1

REPORT INFORMATION
  Report Type: Spontaneous
  Country: US (occurrence: US)
  Receive Date: 20240328
  Receipt Date: 20240328
  Transmission Date: 20240410
  Serious: No
  Sender: FDA-Public Use
  Company Number: US-BRISTOL-MYERS SQUIBB COMPANY-2024-049991

PATIENT
  Age: 52 Year
  Sex: Male

DRUGS (1)
  1. SOTYKTU [Suspect]
     Active Substance: DEUCRAVACITINIB
     Indication: Psoriasis
     Dosage: FREQUENCY-EVERY DAY
     Route: 048

REACTIONS (5)
  - Aggression [Unknown]
  - Insurance issue [Unknown]
  - Therapy interrupted [Unknown]
  - Bradykinesia [Unknown]
  - Rash [Recovered/Resolved]
